FAERS Safety Report 22299438 (Version 1)
Quarter: 2023Q2

REPORT INFORMATION
  Report Type: Spontaneous
  Country: US (occurrence: None)
  Receive Date: 20230508
  Receipt Date: 20230508
  Transmission Date: 20230721
  Serious: Yes (Disabling)
  Sender: FDA-Public Use
  Company Number: None

PATIENT
  Age: 53 Year
  Sex: Female
  Weight: 76.5 kg

DRUGS (2)
  1. REGLAN [Suspect]
     Active Substance: METOCLOPRAMIDE HYDROCHLORIDE
     Indication: Dizziness
     Dates: start: 20220809, end: 20220809
  2. REGLAN [Suspect]
     Active Substance: METOCLOPRAMIDE HYDROCHLORIDE
     Indication: Nausea

REACTIONS (18)
  - Agitation [None]
  - Fear [None]
  - Panic reaction [None]
  - Anxiety [None]
  - Feeling abnormal [None]
  - Tremor [None]
  - Tremor [None]
  - Motor dysfunction [None]
  - Fatigue [None]
  - Insomnia [None]
  - Restlessness [None]
  - Food aversion [None]
  - Weight decreased [None]
  - Pain [None]
  - Arthralgia [None]
  - Gait disturbance [None]
  - Exercise tolerance decreased [None]
  - Muscle spasms [None]

NARRATIVE: CASE EVENT DATE: 20220809
